FAERS Safety Report 9496675 (Version 1)
Quarter: 2013Q3

REPORT INFORMATION
  Report Type: Spontaneous
  Country: KR (occurrence: None)
  Receive Date: 20130828
  Receipt Date: 20130828
  Transmission Date: 20140515
  Serious: Yes (Hospitalization, Other)
  Sender: FDA-Public Use
  Company Number: TPA2013A06668

PATIENT
  Age: 57 Year
  Sex: Female

DRUGS (4)
  1. COLCHICINE (COLCHICINE) [Suspect]
     Indication: GOUT
     Dosage: 0.6MG (0.3MG, 2 IN 1D)
  2. CYCLOSPORINE (CICLOSPORIN) [Suspect]
     Dosage: 100MG (50MG, 2 IN 1D)
  3. MYCOPHENOLATE (MYCOPHENOLATE MOFETIL) [Concomitant]
  4. ROSUVASTATIN (ROSUVASTATIN) [Concomitant]

REACTIONS (3)
  - Myopathy [None]
  - Neuropathy peripheral [None]
  - Drug interaction [None]
